FAERS Safety Report 22250685 (Version 1)
Quarter: 2023Q2

REPORT INFORMATION
  Report Type: Spontaneous
  Country: US (occurrence: None)
  Receive Date: 20230422
  Receipt Date: 20230422
  Transmission Date: 20230721
  Serious: No
  Sender: FDA-Public Use
  Company Number: None

PATIENT
  Sex: Female
  Weight: 64.41 kg

DRUGS (11)
  1. CAPECITABINE [Suspect]
     Active Substance: CAPECITABINE
     Indication: Breast cancer female
     Dosage: FREQUENCY : TWICE A DAY;?
     Route: 048
  2. CALCIUM\VITAMIN D [Concomitant]
     Active Substance: CALCIUM\VITAMIN D
  3. HEPARIN [Concomitant]
     Active Substance: HEPARIN SODIUM
  4. HERCEPTIN [Concomitant]
     Active Substance: TRASTUZUMAB
  5. KLOR-CON [Concomitant]
     Active Substance: POTASSIUM CHLORIDE
  6. MAGNESIUM CHLORIDE [Concomitant]
     Active Substance: MAGNESIUM CHLORIDE
  7. VITAMINS [Concomitant]
     Active Substance: VITAMINS
  8. PROCHLORPERAZINE [Concomitant]
     Active Substance: PROCHLORPERAZINE
  9. TUKYSA [Concomitant]
     Active Substance: TUCATINIB
  10. ZOFRAN [Concomitant]
     Active Substance: ONDANSETRON HYDROCHLORIDE
  11. ZOLEDRONIC ACID [Concomitant]
     Active Substance: ZOLEDRONIC ACID

REACTIONS (7)
  - Palmar-plantar erythrodysaesthesia syndrome [None]
  - Oral mucosal blistering [None]
  - Ocular hyperaemia [None]
  - Eye pruritus [None]
  - Epistaxis [None]
  - Therapy interrupted [None]
  - Stomatitis [None]
